FAERS Safety Report 23320869 (Version 3)
Quarter: 2024Q1

REPORT INFORMATION
  Report Type: Spontaneous
  Country: CO (occurrence: CO)
  Receive Date: 20231220
  Receipt Date: 20240205
  Transmission Date: 20240409
  Serious: No
  Sender: FDA-Public Use
  Company Number: CO-PFIZER INC-PV202300195320

PATIENT
  Age: 9 Year
  Sex: Female
  Weight: 22 kg

DRUGS (1)
  1. GENOTROPIN [Suspect]
     Active Substance: SOMATROPIN
     Indication: Foetal growth restriction
     Dosage: 1.3 MG, DAILY
     Route: 058

REACTIONS (1)
  - Device use issue [Unknown]
